FAERS Safety Report 6339915-6 (Version None)
Quarter: 2009Q3

REPORT INFORMATION
  Report Type: 
  Country: None (occurrence: None)
  Receive Date: 20090903
  Receipt Date: 20090828
  Transmission Date: 20100115
  Serious: Yes (Other)
  Sender: FDA-Public Use
  Company Number: GB-TEVA-204542ISR

PATIENT
  Sex: Female
  Weight: 50 kg

DRUGS (5)
  1. ERYTHROMYCIN [Suspect]
     Indication: ACNE
     Route: 048
     Dates: start: 20090601, end: 20090709
  2. ERYTHROMYCIN [Concomitant]
  3. CITALOPRAM HYDROBROMIDE [Suspect]
     Indication: ANXIETY
     Route: 048
  4. CITALOPRAM HYDROBROMIDE [Suspect]
     Dosage: 15MG/D FROM WEEK 3
     Route: 048
  5. CITALOPRAM HYDROBROMIDE [Suspect]
     Route: 048

REACTIONS (1)
  - SEROTONIN SYNDROME [None]
